FAERS Safety Report 5871999-1 (Version None)
Quarter: 2008Q3

REPORT INFORMATION
  Report Type: 
  Country: None (occurrence: None)
  Receive Date: 20080902
  Receipt Date: 20080821
  Transmission Date: 20090109
  Serious: Yes (Death)
  Sender: FDA-Public Use
  Company Number: 2008BI021562

PATIENT
  Age: 58 Year
  Sex: Female

DRUGS (3)
  1. TYSABRI [Suspect]
     Indication: RELAPSING-REMITTING MULTIPLE SCLEROSIS
     Dosage: 300 MG; QM; IV
     Route: 042
     Dates: start: 20071001, end: 20080523
  2. CORTISONE [Concomitant]
  3. MITOXANTRONE [Concomitant]

REACTIONS (2)
  - ERYTHEMA MULTIFORME [None]
  - PULMONARY EMBOLISM [None]
